FAERS Safety Report 14649620 (Version 1)
Quarter: 2018Q1

REPORT INFORMATION
  Report Type: Spontaneous
  Country: PT (occurrence: PT)
  Receive Date: 20180316
  Receipt Date: 20180316
  Transmission Date: 20180509
  Serious: Yes (Disabling, Other)
  Sender: FDA-Public Use
  Company Number: PT-TEVA-2018-PT-868881

PATIENT
  Age: 71 Year
  Sex: Female
  Weight: 62 kg

DRUGS (1)
  1. DOCETAXEL. [Suspect]
     Active Substance: DOCETAXEL
     Indication: BREAST CANCER
     Dosage: 100MG/M2
     Route: 042

REACTIONS (3)
  - Wound dehiscence [Recovered/Resolved]
  - Rash [Recovered/Resolved]
  - Mucosal inflammation [Recovered/Resolved]
